FAERS Safety Report 16929308 (Version 1)
Quarter: 2019Q4

REPORT INFORMATION
  Report Type: Spontaneous
  Country: US (occurrence: US)
  Receive Date: 20191016
  Receipt Date: 20191016
  Transmission Date: 20200122
  Serious: Yes (Hospitalization)
  Sender: FDA-Public Use
  Company Number: None

PATIENT
  Age: 47 Year
  Sex: Female

DRUGS (4)
  1. ALBUTEROL HFA [Concomitant]
     Active Substance: ALBUTEROL SULFATE
  2. MONTELUKAST [Concomitant]
     Active Substance: MONTELUKAST SODIUM
  3. LEVEMIR [Concomitant]
     Active Substance: INSULIN DETEMIR
  4. NUCALA [Suspect]
     Active Substance: MEPOLIZUMAB
     Indication: ASTHMA
     Dosage: ?          OTHER FREQUENCY:USE AS DIRECTED;?
     Route: 058
     Dates: start: 20190124

REACTIONS (1)
  - Asthma [None]

NARRATIVE: CASE EVENT DATE: 20191005
